FAERS Safety Report 4340718-2 (Version None)
Quarter: 2004Q2

REPORT INFORMATION
  Report Type: 
  Country: None (occurrence: None)
  Receive Date: 20040419
  Receipt Date: 20040408
  Transmission Date: 20050107
  Serious: Yes (Death, Hospitalization)
  Sender: FDA-Public Use
  Company Number: 200412792US

PATIENT
  Sex: Male
  Weight: 68.2 kg

DRUGS (24)
  1. ARAVA [Suspect]
     Indication: RHEUMATOID ARTHRITIS
     Route: 048
     Dates: start: 19990101, end: 20020514
  2. METHOTREXATE [Concomitant]
  3. MEDROL [Concomitant]
     Route: 048
  4. HYZAAR [Concomitant]
     Dosage: DOSE: 50/12.5
     Route: 048
  5. ZOLOFT                                  /USA/ [Concomitant]
  6. DARVOCET-N 100 [Concomitant]
     Dates: end: 20010110
  7. NORVASC [Concomitant]
     Route: 048
  8. PREVACID [Concomitant]
     Route: 048
     Dates: end: 20020101
  9. ZOCOR [Concomitant]
     Route: 048
     Dates: end: 20010110
  10. CELEBREX [Concomitant]
     Route: 048
  11. LOTRISONE [Concomitant]
     Dates: end: 20010101
  12. FLONASE [Concomitant]
     Route: 045
  13. AMARYL [Concomitant]
     Dates: start: 20000801
  14. BACTRIM DS [Concomitant]
     Dates: start: 20010125, end: 20010319
  15. MICRO-K [Concomitant]
     Dates: start: 20020115
  16. LIPITOR [Concomitant]
     Dates: start: 20010401
  17. TETRACYCLINE [Concomitant]
     Dates: start: 20010101, end: 20010101
  18. ACETAMINOPHEN AND OXYCODONE HCL [Concomitant]
     Dosage: DOSE: 5/325
     Dates: start: 20010101, end: 20010101
  19. VENTOLIN [Concomitant]
     Dosage: DOSE: UNK
     Dates: start: 20010101
  20. MOBIC [Concomitant]
     Dates: end: 20011015
  21. REMICADE [Concomitant]
     Route: 042
     Dates: start: 20021001
  22. PROTONIX [Concomitant]
     Dates: start: 20021218
  23. LASIX [Concomitant]
     Dates: start: 20021218
  24. BEXTRA [Concomitant]
     Dates: start: 20020101

REACTIONS (20)
  - ABDOMINAL PAIN [None]
  - ADENOCARCINOMA [None]
  - ALANINE AMINOTRANSFERASE INCREASED [None]
  - ASPARTATE AMINOTRANSFERASE INCREASED [None]
  - BLOOD ALKALINE PHOSPHATASE INCREASED [None]
  - BLOOD CALCIUM INCREASED [None]
  - BLOOD CHOLESTEROL INCREASED [None]
  - CALCINOSIS [None]
  - CORONARY ARTERY OCCLUSION [None]
  - DERMATITIS [None]
  - EMPHYSEMA [None]
  - HYPERCALCAEMIA [None]
  - LUNG NEOPLASM [None]
  - METASTASES TO LIVER [None]
  - METASTASES TO LUNG [None]
  - NAUSEA [None]
  - PANCREATIC CARCINOMA [None]
  - RASH [None]
  - UPPER RESPIRATORY TRACT INFECTION [None]
  - VOMITING [None]
